FAERS Safety Report 6359020-2 (Version None)
Quarter: 2009Q3

REPORT INFORMATION
  Report Type: 
  Country: None (occurrence: None)
  Receive Date: 20090917
  Receipt Date: 20070716
  Transmission Date: 20100115
  Serious: Yes (Hospitalization)
  Sender: FDA-Public Use
  Company Number: US-ASTRAZENECA-2009SE11146

PATIENT
  Age: 16284 Day
  Sex: Male
  Weight: 97.5 kg

DRUGS (10)
  1. SEROQUEL [Suspect]
     Dosage: 25-150 MG DAILY
     Route: 048
     Dates: start: 20021216
  2. ACCUPRIL [Concomitant]
     Dosage: 10-20 MG
     Route: 048
     Dates: start: 19990730
  3. LOPRESSOR [Concomitant]
     Dosage: 40-100 MG
     Route: 048
     Dates: start: 20020611
  4. LIPITOR [Concomitant]
     Dosage: 10-40 MG
     Route: 048
     Dates: start: 20030106
  5. REMERON [Concomitant]
     Dosage: 15-60 MG
     Route: 048
     Dates: start: 20021202
  6. TRICOR [Concomitant]
     Route: 048
     Dates: start: 20021031
  7. PLAVIX [Concomitant]
     Route: 048
     Dates: start: 20020611
  8. ASPIRIN [Concomitant]
     Route: 048
     Dates: start: 20020624
  9. PREVACID [Concomitant]
     Route: 048
     Dates: start: 20020608
  10. ADVICOR [Concomitant]
     Dosage: 500/20 MG DAILY
     Route: 048
     Dates: start: 20020611

REACTIONS (6)
  - HYPERTRIGLYCERIDAEMIA [None]
  - HYPOTHYROIDISM [None]
  - INSOMNIA [None]
  - PSYCHOTIC DISORDER [None]
  - TRANSIENT PSYCHOSIS [None]
  - TYPE 2 DIABETES MELLITUS [None]
